FAERS Safety Report 10396672 (Version 2)
Quarter: 2014Q3

REPORT INFORMATION
  Report Type: Spontaneous
  Country: CA (occurrence: CA)
  Receive Date: 20140820
  Receipt Date: 20140912
  Transmission Date: 20150326
  Serious: Yes (Disabling)
  Sender: FDA-Public Use
  Company Number: CA-GLAXOSMITHKLINE-A1080820A

PATIENT
  Sex: Female

DRUGS (5)
  1. RHINOCORT [Concomitant]
     Active Substance: BUDESONIDE
     Indication: SINUSITIS
     Dates: start: 20140613, end: 20140726
  2. AEROCHAMBER [Concomitant]
     Active Substance: DEVICE
  3. SALBUTAMOL [Concomitant]
     Active Substance: ALBUTEROL
  4. FLOVENT [Suspect]
     Active Substance: FLUTICASONE PROPIONATE
     Indication: BRONCHITIS CHRONIC
     Dosage: 1PUFF TWICE PER DAY
     Route: 055
     Dates: start: 201307
  5. COVERSYL [Concomitant]
     Active Substance: PERINDOPRIL
     Indication: HYPERTENSION
     Dosage: 8MG PER DAY
     Route: 048
     Dates: start: 20130920

REACTIONS (4)
  - Cough [Not Recovered/Not Resolved]
  - Dyspnoea [Not Recovered/Not Resolved]
  - Product quality issue [Unknown]
  - Wheezing [Unknown]

NARRATIVE: CASE EVENT DATE: 2014
